FAERS Safety Report 6807522-4 (Version None)
Quarter: 2010Q2

REPORT INFORMATION
  Report Type: 
  Country: None (occurrence: None)
  Receive Date: 20100629
  Receipt Date: 20081009
  Transmission Date: 20101027
  Serious: No
  Sender: FDA-Public Use
  Company Number: US-PFIZER INC-2008084955

PATIENT
  Sex: Female

DRUGS (2)
  1. TIKOSYN [Suspect]
  2. WARFARIN [Suspect]

REACTIONS (1)
  - ARTHRITIS [None]
